FAERS Safety Report 5942128-0 (Version None)
Quarter: 2008Q4

REPORT INFORMATION
  Report Type: 
  Country: None (occurrence: None)
  Receive Date: 20081104
  Receipt Date: 20081104
  Transmission Date: 20090506
  Serious: No
  Sender: FDA-Public Use
  Company Number: None

PATIENT
  Age: 82 Year
  Sex: Male
  Weight: 80 kg

DRUGS (1)
  1. METOPROLOL TARTRATE [Suspect]
     Dosage: 5 MG ONCE IV
     Route: 042
     Dates: start: 20080108, end: 20080108

REACTIONS (1)
  - BRADYCARDIA [None]
